FAERS Safety Report 10552095 (Version 1)
Quarter: 2014Q4

REPORT INFORMATION
  Report Type: Spontaneous
  Country: SE (occurrence: SE)
  Receive Date: 20141029
  Receipt Date: 20141029
  Transmission Date: 20150529
  Serious: Yes (Hospitalization)
  Sender: FDA-Public Use
  Company Number: SE-SA-2014SA144628

PATIENT
  Sex: Female

DRUGS (13)
  1. EDRONAX [Concomitant]
     Active Substance: REBOXETINE MESYLATE
     Indication: DEPRESSION
  2. LANTUS [Suspect]
     Active Substance: INSULIN GLARGINE
     Indication: TYPE 2 DIABETES MELLITUS
     Route: 065
     Dates: start: 2008
  3. KESTINE [Concomitant]
     Active Substance: EBASTINE
     Indication: HYPERSENSITIVITY
  4. VENTOLINE [Concomitant]
     Active Substance: ALBUTEROL
     Indication: ASTHMA
  5. LANTUS SOLOSTAR [Suspect]
     Active Substance: INSULIN GLARGINE
     Indication: BLOOD GLUCOSE INCREASED
     Dosage: DOSE:40 UNIT(S)
     Route: 065
  6. STESOLID [Concomitant]
     Active Substance: DIAZEPAM
     Indication: ORTHOSTATIC TREMOR
     Dosage: 2MG X 5?STRENGTH: 2 MG
  7. SOLOSTAR [Concomitant]
     Active Substance: DEVICE
  8. LANTUS SOLOSTAR [Suspect]
     Active Substance: INSULIN GLARGINE
     Indication: BLOOD GLUCOSE INCREASED
     Dosage: DOSE:50 UNIT(S)
     Route: 065
     Dates: start: 201401
  9. TIOTROPIUM BROMIDE [Concomitant]
     Active Substance: TIOTROPIUM BROMIDE
     Indication: ASTHMA
  10. LEVAXIN [Concomitant]
     Active Substance: LEVOTHYROXINE SODIUM
     Indication: THYROID DISORDER
  11. LANTUS [Suspect]
     Active Substance: INSULIN GLARGINE
     Indication: TYPE 2 DIABETES MELLITUS
     Route: 065
     Dates: start: 201301
  12. LITHIONIT [Suspect]
     Active Substance: LITHIUM SULFATE
     Route: 065
  13. LANTUS SOLOSTAR [Suspect]
     Active Substance: INSULIN GLARGINE
     Indication: BLOOD GLUCOSE INCREASED
     Dosage: DOSE: 40-45 U
     Route: 065

REACTIONS (7)
  - Abdominal pain upper [Unknown]
  - Blood calcium increased [Unknown]
  - Migraine [Unknown]
  - Nausea [Unknown]
  - Muscle disorder [Unknown]
  - Dysstasia [Unknown]
  - Headache [Unknown]

NARRATIVE: CASE EVENT DATE: 2008
